FAERS Safety Report 24563679 (Version 2)
Quarter: 2024Q4

REPORT INFORMATION
  Report Type: Report from Study
  Country: KR (occurrence: KR)
  Receive Date: 20241030
  Receipt Date: 20241031
  Transmission Date: 20250115
  Serious: Yes (Death)
  Sender: ROCHE
  Company Number: KR-ROCHE-10000117877

PATIENT

DRUGS (1)
  1. RITUXIMAB [Suspect]
     Active Substance: RITUXIMAB
     Indication: Lymphoma
     Route: 065

REACTIONS (1)
  - COVID-19 pneumonia [Fatal]
